FAERS Safety Report 6618140-5 (Version None)
Quarter: 2010Q1

REPORT INFORMATION
  Report Type: 
  Country: None (occurrence: None)
  Receive Date: 20100308
  Receipt Date: 20100226
  Transmission Date: 20100710
  Serious: Yes (Hospitalization)
  Sender: FDA-Public Use
  Company Number: FR-ROCHE-687859

PATIENT
  Sex: Female

DRUGS (8)
  1. AVASTIN [Suspect]
     Indication: COLON CANCER
     Route: 042
     Dates: start: 20100202, end: 20100203
  2. IRINOTECAN HCL [Suspect]
     Indication: COLON CANCER
     Route: 042
     Dates: start: 20100202, end: 20100203
  3. FLUOROURACIL [Suspect]
     Indication: COLON CANCER
     Route: 042
     Dates: start: 20100202, end: 20100203
  4. FOLINIC ACID [Concomitant]
  5. PREVISCAN [Concomitant]
  6. IMOVANE [Concomitant]
  7. LEXOMIL [Concomitant]
  8. IMODIUM [Concomitant]

REACTIONS (2)
  - ERYTHEMA [None]
  - FACE OEDEMA [None]
